FAERS Safety Report 19769135 (Version 1)
Quarter: 2021Q3

REPORT INFORMATION
  Report Type: Spontaneous
  Country: US (occurrence: US)
  Receive Date: 20210827
  Receipt Date: 20210827
  Transmission Date: 20211014
  Serious: No
  Sender: FDA-Public Use
  Company Number: None

PATIENT
  Age: 79 Year
  Sex: Male

DRUGS (1)
  1. ABIRATERONE TAB 500MG [Suspect]
     Active Substance: ABIRATERONE
     Route: 048
     Dates: start: 202006

REACTIONS (3)
  - Dyspnoea [None]
  - Chest pain [None]
  - Diarrhoea [None]

NARRATIVE: CASE EVENT DATE: 20210827
